FAERS Safety Report 19697299 (Version 4)
Quarter: 2022Q1

REPORT INFORMATION
  Report Type: Spontaneous
  Country: BE (occurrence: BE)
  Receive Date: 20210813
  Receipt Date: 20220210
  Transmission Date: 20220423
  Serious: Yes (Hospitalization, Other)
  Sender: FDA-Public Use
  Company Number: BE-PFIZER INC-202100986523

PATIENT
  Age: 33 Year
  Sex: Female

DRUGS (6)
  1. LORAZEPAM [Interacting]
     Active Substance: LORAZEPAM
     Indication: Catatonia
     Dosage: 7 MG, DAILY (HIGH DOSES) (SPREAD OVER FOUR DOSES)
     Route: 042
     Dates: start: 2020, end: 2020
  2. LORAZEPAM [Interacting]
     Active Substance: LORAZEPAM
     Dosage: 2.5 MG, 1X/DAY (2.5 MG PER DAY OVER 5 DAYS)
     Dates: start: 2020
  3. VALPROIC ACID [Interacting]
     Active Substance: VALPROIC ACID
     Indication: Epilepsy
     Dosage: 800 MG, DAILY (GRADUALLY INCREASED TO 800 MG PER DAY SPREAD OVER 2 DOSES)
     Dates: start: 2020
  4. ARIPIPRAZOLE [Concomitant]
     Active Substance: ARIPIPRAZOLE
     Indication: Catatonia
     Dosage: 15 MG
     Dates: start: 2020
  5. LITHIUM [Concomitant]
     Active Substance: LITHIUM
     Indication: Catatonia
     Dosage: 600 MG
     Dates: start: 2020
  6. CLOZAPINE [Concomitant]
     Active Substance: CLOZAPINE
     Indication: Catatonia
     Dosage: 50 MG
     Dates: start: 2020

REACTIONS (3)
  - Metabolic encephalopathy [Recovered/Resolved]
  - Stupor [Recovered/Resolved]
  - Drug interaction [Recovered/Resolved]

NARRATIVE: CASE EVENT DATE: 20200101
